FAERS Safety Report 10823534 (Version 1)
Quarter: 2015Q1

REPORT INFORMATION
  Report Type: Report from Study
  Country: US (occurrence: US)
  Receive Date: 20150218
  Receipt Date: 20150218
  Transmission Date: 20150721
  Serious: No
  Sender: FDA-Public Use
  Company Number: US-ABBVIE-14K-163-1306246-00

PATIENT
  Sex: Female

DRUGS (2)
  1. HUMIRA [Suspect]
     Active Substance: ADALIMUMAB
     Indication: PSORIATIC ARTHROPATHY
     Route: 065
     Dates: start: 201406, end: 20141104
  2. HUMIRA [Suspect]
     Active Substance: ADALIMUMAB
     Indication: PSORIASIS

REACTIONS (9)
  - Arthralgia [Not Recovered/Not Resolved]
  - Generalised oedema [Recovered/Resolved]
  - Joint swelling [Not Recovered/Not Resolved]
  - Joint swelling [Recovered/Resolved]
  - Tenderness [Recovered/Resolved]
  - Joint swelling [Recovering/Resolving]
  - Alopecia [Not Recovered/Not Resolved]
  - Psoriasis [Unknown]
  - Peripheral swelling [Recovering/Resolving]

NARRATIVE: CASE EVENT DATE: 2014
